FAERS Safety Report 4619382-0 (Version None)
Quarter: 2005Q2

REPORT INFORMATION
  Report Type: 
  Country: None (occurrence: None)
  Receive Date: 20050325
  Receipt Date: 20010907
  Transmission Date: 20051028
  Serious: Yes (Life-Threatening, Hospitalization)
  Sender: FDA-Public Use
  Company Number: 64886-2002-049

PATIENT
  Age: 40 Year
  Sex: Male

DRUGS (1)
  1. FLUOROURACIL [Suspect]
     Indication: COLON CANCER

REACTIONS (2)
  - CARDIO-RESPIRATORY ARREST [None]
  - CHEST PAIN [None]
